FAERS Safety Report 17794852 (Version 1)
Quarter: 2020Q2

REPORT INFORMATION
  Report Type: Spontaneous
  Country: IT (occurrence: IT)
  Receive Date: 20200515
  Receipt Date: 20200515
  Transmission Date: 20200714
  Serious: Yes (Life-Threatening, Hospitalization, Other)
  Sender: FDA-Public Use
  Company Number: IT-SA-2020SA121827

PATIENT
  Age: 63 Year
  Sex: Female

DRUGS (1)
  1. ENOXAPARIN SODIUM. [Suspect]
     Active Substance: ENOXAPARIN SODIUM
     Dosage: UNK

REACTIONS (16)
  - Cerebral artery thrombosis [Recovered/Resolved]
  - Altered state of consciousness [Recovered/Resolved]
  - Tremor [Recovered/Resolved]
  - Pulmonary embolism [Recovered/Resolved]
  - Hemiplegia [Recovered/Resolved]
  - Abdominal pain upper [Recovered/Resolved]
  - Cerebral ischaemia [Recovered/Resolved]
  - Venous thrombosis limb [Recovered/Resolved]
  - Hyperpyrexia [Recovered/Resolved]
  - Heparin-induced thrombocytopenia [Recovered/Resolved]
  - Cerebral venous thrombosis [Recovered/Resolved]
  - Pulmonary venous thrombosis [Recovered/Resolved]
  - Fibrin D dimer increased [Recovered/Resolved]
  - Hepatic vein thrombosis [Recovered/Resolved]
  - Anaemia [Recovered/Resolved]
  - Headache [Recovered/Resolved]
